FAERS Safety Report 7640026-8 (Version None)
Quarter: 2011Q3

REPORT INFORMATION
  Report Type: 
  Country: None (occurrence: None)
  Receive Date: 20110727
  Receipt Date: 20110720
  Transmission Date: 20111222
  Serious: Yes (Hospitalization, Disabling)
  Sender: FDA-Public Use
  Company Number: US-MERCK-1104USA03484

PATIENT
  Age: 73 Year
  Sex: Female
  Weight: 57 kg

DRUGS (10)
  1. FOSAMAX [Suspect]
     Route: 048
     Dates: start: 20080401
  2. BIOTIN [Concomitant]
     Route: 048
  3. CALTRATE + IRON AND VITAMIN D [Concomitant]
     Route: 048
     Dates: start: 19850101
  4. ACTONEL [Concomitant]
     Route: 048
     Dates: start: 20070101, end: 20110201
  5. PREMARIN [Concomitant]
     Route: 048
     Dates: start: 19860101
  6. VITAMIN E [Concomitant]
     Route: 048
     Dates: start: 19850101
  7. CALCIUM (UNSPECIFIED) [Concomitant]
     Route: 048
  8. FOSAMAX [Suspect]
     Indication: OSTEOPOROSIS
     Route: 048
     Dates: start: 20020919, end: 20070701
  9. [THERAPY UNSPECIFIED] [Concomitant]
     Route: 048
  10. ALOE VERA AND APPLE AND BILLBERRY AND BLUEBERRY AND CRANBERRY AND GENT [Concomitant]
     Route: 048
     Dates: start: 19850101

REACTIONS (33)
  - GALLBLADDER DISORDER [None]
  - LUMBAR SPINAL STENOSIS [None]
  - SACROILIITIS [None]
  - INFLAMMATION [None]
  - SPINAL DECOMPRESSION [None]
  - URINARY TRACT INFECTION [None]
  - OSTEOARTHRITIS [None]
  - BALANCE DISORDER [None]
  - SPINAL DISORDER [None]
  - AORTIC CALCIFICATION [None]
  - SPONDYLOLISTHESIS [None]
  - HYPERTENSION [None]
  - GASTROINTESTINAL DISORDER [None]
  - BURNING SENSATION [None]
  - DEPRESSION [None]
  - HEADACHE [None]
  - THYROID DISORDER [None]
  - CONSTIPATION [None]
  - DYSLIPIDAEMIA [None]
  - FEMUR FRACTURE [None]
  - POST PROCEDURAL HAEMORRHAGE [None]
  - ANXIETY [None]
  - INTERVERTEBRAL DISC PROTRUSION [None]
  - VOMITING [None]
  - RADICULOPATHY [None]
  - EYELID DISORDER [None]
  - BACK PAIN [None]
  - TINNITUS [None]
  - PAIN IN EXTREMITY [None]
  - INSOMNIA [None]
  - SKIN BURNING SENSATION [None]
  - OSTEOPENIA [None]
  - FALL [None]
